FAERS Safety Report 16512778 (Version 4)
Quarter: 2019Q3

REPORT INFORMATION
  Report Type: Spontaneous
  Country: PT (occurrence: PT)
  Receive Date: 20190702
  Receipt Date: 20190920
  Transmission Date: 20191004
  Serious: Yes (Hospitalization, Other)
  Sender: FDA-Public Use
  Company Number: PT-MYLANLABS-2019M1060202

PATIENT
  Age: 59 Year
  Sex: Female

DRUGS (5)
  1. LEVOTHYROXINE SODIUM. [Suspect]
     Active Substance: LEVOTHYROXINE SODIUM
     Indication: WEIGHT DECREASED
     Dosage: 75 UG, MAINTENANCE THERAPY
  2. METFORMIN [Suspect]
     Active Substance: METFORMIN HYDROCHLORIDE
     Indication: WEIGHT DECREASED
  3. LEVOTHYROXINE SODIUM. [Suspect]
     Active Substance: LEVOTHYROXINE SODIUM
     Indication: HYPOTHYROIDISM
     Dosage: 250 UG, ONE MONTH BEFORE THE EVENT
  4. METFORMIN [Suspect]
     Active Substance: METFORMIN HYDROCHLORIDE
     Indication: WEIGHT CONTROL
     Dosage: UNK
  5. LEVOTHYROXINE SODIUM. [Suspect]
     Active Substance: LEVOTHYROXINE SODIUM
     Indication: WEIGHT CONTROL
     Dosage: 150 UG, REDUCTION OF DOSE

REACTIONS (12)
  - Headache [Recovered/Resolved]
  - Hyperthyroidism [Unknown]
  - Intentional product misuse [Unknown]
  - Intentional overdose [Unknown]
  - Drug abuse [Unknown]
  - Off label use [Unknown]
  - Generalised tonic-clonic seizure [Recovered/Resolved]
  - Hypercoagulation [Recovered/Resolved]
  - Product use in unapproved therapeutic environment [Unknown]
  - Loss of consciousness [Recovered/Resolved]
  - Haemorrhage [Recovered/Resolved]
  - Cerebral venous thrombosis [Recovered/Resolved]
